FAERS Safety Report 16789748 (Version 2)
Quarter: 2021Q3

REPORT INFORMATION
  Report Type: Spontaneous
  Country: FR (occurrence: FR)
  Receive Date: 20190910
  Receipt Date: 20210930
  Transmission Date: 20211014
  Serious: Yes (Hospitalization, Other)
  Sender: FDA-Public Use
  Company Number: FR-MYLANLABS-2019M1083072

PATIENT
  Age: 66 Year
  Sex: Male

DRUGS (11)
  1. VORICONAZOLE. [Suspect]
     Active Substance: VORICONAZOLE
     Indication: TRICHOSPORON INFECTION
     Dosage: 6 MILLIGRAM/KILOGRAM, ON DAY 1
     Route: 042
     Dates: start: 20180718
  2. AMBISOME [Suspect]
     Active Substance: AMPHOTERICIN B
     Indication: TRICHOSPORON INFECTION
     Route: 065
     Dates: start: 20180718
  3. VORICONAZOLE. [Suspect]
     Active Substance: VORICONAZOLE
     Indication: FUNGAEMIA
     Dosage: 4 MILLIGRAM/KILOGRAM
     Route: 042
  4. BLINATUMOMAB [Suspect]
     Active Substance: BLINATUMOMAB
     Indication: ACUTE LYMPHOCYTIC LEUKAEMIA
     Route: 065
  5. LENALIDOMIDE [Suspect]
     Active Substance: LENALIDOMIDE
     Indication: PLASMA CELL MYELOMA
     Dosage: RECEIVED 33 CYCLES
     Route: 065
  6. DEXAMETHASONE. [Suspect]
     Active Substance: DEXAMETHASONE
     Indication: PLASMA CELL MYELOMA
     Route: 065
  7. BORTEZOMIB. [Suspect]
     Active Substance: BORTEZOMIB
     Indication: PLASMA CELL MYELOMA
     Route: 065
  8. CASPOFUNGIN [Concomitant]
     Active Substance: CASPOFUNGIN
     Indication: EVIDENCE BASED TREATMENT
     Route: 065
     Dates: start: 20180706
  9. VORICONAZOLE. [Suspect]
     Active Substance: VORICONAZOLE
     Dosage: 2 MILLIGRAM/KILOGRAM
     Route: 042
  10. AMBISOME [Suspect]
     Active Substance: AMPHOTERICIN B
     Indication: FUNGAEMIA
  11. MELPHALAN. [Suspect]
     Active Substance: MELPHALAN
     Indication: PLASMA CELL MYELOMA
     Route: 065

REACTIONS (8)
  - Febrile neutropenia [Recovered/Resolved]
  - Nervous system disorder [Recovered/Resolved]
  - Neurotoxicity [Recovered/Resolved]
  - Trichosporon infection [Recovered/Resolved]
  - Acute biphenotypic leukaemia [Recovered/Resolved]
  - Hallucination [Recovered/Resolved]
  - Acute lymphocytic leukaemia [Recovered/Resolved]
  - Fungaemia [Recovered/Resolved]

NARRATIVE: CASE EVENT DATE: 201503
